FAERS Safety Report 5226210-1 (Version None)
Quarter: 2007Q1

REPORT INFORMATION
  Report Type: 
  Country: None (occurrence: None)
  Receive Date: 20070129
  Receipt Date: 20070117
  Transmission Date: 20070707
  Serious: Yes (Death)
  Sender: FDA-Public Use
  Company Number: 235155

PATIENT
  Age: 62 Year
  Sex: Male
  Weight: 59 kg

DRUGS (10)
  1. RITUXAN [Suspect]
     Indication: NON-HODGKIN'S LYMPHOMA
     Dosage: 375 MG, INTRAVENOUS
     Route: 042
     Dates: start: 20060531
  2. FLUDARABINE PHOSPHATE [Suspect]
     Indication: NON-HODGKIN'S LYMPHOMA
     Dosage: 40 MG, ORAL
     Route: 048
     Dates: start: 20060531
  3. CALONAL (ACETAMINOPHEN) [Concomitant]
  4. POLARAMINE [Concomitant]
  5. MORPHINE [Concomitant]
  6. OXYCONTIN [Concomitant]
  7. GLICLAZIDE (GLICLAZIDE) [Concomitant]
  8. KALLIDINOGENASE (KALLIDINOGENASE) [Concomitant]
  9. ADONA (CARBAZOCHROME SODIUM SULFONATE) [Concomitant]
  10. ZOVIRAX [Concomitant]

REACTIONS (6)
  - ASTHENIA [None]
  - DISEASE PROGRESSION [None]
  - GENERAL PHYSICAL HEALTH DETERIORATION [None]
  - LYMPHOCYTE COUNT DECREASED [None]
  - NEUTROPHIL COUNT DECREASED [None]
  - WHITE BLOOD CELL COUNT DECREASED [None]
